FAERS Safety Report 7426817-7 (Version None)
Quarter: 2011Q2

REPORT INFORMATION
  Report Type: 
  Country: None (occurrence: None)
  Receive Date: 20110420
  Receipt Date: 20110412
  Transmission Date: 20111010
  Serious: Yes (Other)
  Sender: FDA-Public Use
  Company Number: PHHY2011US32119

PATIENT
  Age: 10 Year
  Sex: Female

DRUGS (4)
  1. LAMOTRIGINE [Suspect]
     Indication: GRAND MAL CONVULSION
     Dosage: 22 MG/KG, DAILY
  2. CLONAZEPAM [Concomitant]
     Dosage: UNK UKN, UNK
  3. LAMOTRIGINE [Suspect]
     Dosage: 25 MG/KG, DAILY
  4. LAMOTRIGINE [Suspect]
     Dosage: 20 MG/KG, DAILY

REACTIONS (8)
  - CEREBRAL ATROPHY [None]
  - IRRITABILITY [None]
  - TOXICITY TO VARIOUS AGENTS [None]
  - TREMOR [None]
  - OVERDOSE [None]
  - OCULOGYRIC CRISIS [None]
  - GAZE PALSY [None]
  - CEREBELLAR ATROPHY [None]
